FAERS Safety Report 25999689 (Version 1)
Quarter: 2025Q4

REPORT INFORMATION
  Report Type: Spontaneous
  Country: US (occurrence: US)
  Receive Date: 20251105
  Receipt Date: 20251105
  Transmission Date: 20260117
  Serious: Yes (Life-Threatening, Hospitalization, Other)
  Sender: ASCENT PHARMACEUTICALS INC
  Company Number: US-ASCENT-2025ASLIT00251

PATIENT
  Age: 18 Year
  Sex: Male

DRUGS (1)
  1. VENLAFAXINE [Suspect]
     Active Substance: VENLAFAXINE HYDROCHLORIDE
     Indication: Depression
     Route: 065

REACTIONS (5)
  - Status epilepticus [Recovered/Resolved]
  - Arrhythmic storm [Recovered/Resolved]
  - Cardiac arrest [Recovered/Resolved]
  - Cardiac failure congestive [Recovered/Resolved]
  - Overdose [Unknown]
